FAERS Safety Report 24383125 (Version 1)
Quarter: 2024Q4

REPORT INFORMATION
  Report Type: Spontaneous
  Country: US (occurrence: US)
  Receive Date: 20241001
  Receipt Date: 20241001
  Transmission Date: 20250114
  Serious: No
  Sender: CATALYST PHARMA
  Company Number: US-CATALYST PHARMACEUTICALS-US-CATA-24-00398

PATIENT
  Age: 14 Year
  Sex: Male
  Weight: 24.2 kg

DRUGS (36)
  1. AGAMREE [Suspect]
     Active Substance: VAMOROLONE
     Indication: Duchenne muscular dystrophy
     Dosage: 148 MG (3.7 ML), DAILY
     Route: 048
     Dates: start: 20240415, end: 20240430
  2. AGAMREE [Suspect]
     Active Substance: VAMOROLONE
     Dosage: 148 MG (3.7 ML), DAILY
     Route: 048
     Dates: start: 20240506, end: 20240507
  3. BENADRYL [Concomitant]
     Active Substance: DIPHENHYDRAMINE HYDROCHLORIDE
     Indication: Product used for unknown indication
     Dosage: UNKNOWN
     Route: 065
  4. VITAMINS [Concomitant]
     Active Substance: VITAMINS
     Indication: Product used for unknown indication
     Dosage: DAILY
     Route: 065
  5. HERBALS [Concomitant]
     Active Substance: HERBALS
     Indication: Product used for unknown indication
     Dosage: 500 MG DAILY
     Route: 065
  6. OYSTER SHELL [Concomitant]
     Active Substance: OSTREA EDULIS SHELL
     Indication: Product used for unknown indication
     Dosage: 500 MG DAILY
     Route: 065
  7. PROBIOTICS NOS [Concomitant]
     Active Substance: PROBIOTICS NOS
     Indication: Product used for unknown indication
     Dosage: 1 CAPSULE DAILY
     Route: 065
  8. HERBALS\TURMERIC [Concomitant]
     Active Substance: HERBALS\TURMERIC
     Indication: Product used for unknown indication
     Dosage: 500 MG DAILY
     Route: 065
  9. VITAMIN D3 [Concomitant]
     Active Substance: CHOLECALCIFEROL
     Indication: Product used for unknown indication
     Dosage: 125 MCG DAILY
     Route: 048
  10. VITAMIN D3 [Concomitant]
     Active Substance: CHOLECALCIFEROL
     Dosage: 2000 I UNIT, CHEWABLES
     Route: 048
  11. ZOLEDRONIC ACID [Concomitant]
     Active Substance: ZOLEDRONIC ACID
     Indication: Product used for unknown indication
     Dosage: 6.25 MG EVERY 6 MONTHS FOR 3 DOSES
     Route: 042
  12. EMFLAZA [Concomitant]
     Active Substance: DEFLAZACORT
     Indication: Product used for unknown indication
     Dosage: 0.8 ML, DAILY
     Route: 048
  13. PREDNISOLONE [Concomitant]
     Active Substance: PREDNISOLONE
     Indication: Product used for unknown indication
     Dosage: 6 ML (18 MG), DAILY
     Route: 048
  14. ALBUTEROL [Concomitant]
     Active Substance: ALBUTEROL
     Indication: Wheezing
     Dosage: 3 ML, BY NEBULIZER EVERY 4 HOURS AS NEEDED
     Route: 055
  15. SODIUM CHLORIDE [Concomitant]
     Active Substance: SODIUM CHLORIDE
     Indication: Cough
     Dosage: 3 ML BY NEBULIZER EVERY 4 HOURS AS NEEDED
     Route: 055
  16. SODIUM CHLORIDE [Concomitant]
     Active Substance: SODIUM CHLORIDE
     Indication: Nasal congestion
  17. VENTOLIN HFA [Concomitant]
     Active Substance: ALBUTEROL SULFATE
     Indication: Wheezing
     Dosage: 2 PUFFS EVERY 4 HOURS AS NEEDED
     Route: 055
  18. VENTOLIN HFA [Concomitant]
     Active Substance: ALBUTEROL SULFATE
     Indication: Cough
  19. ENALAPRIL [Concomitant]
     Active Substance: ENALAPRIL
     Indication: Product used for unknown indication
     Dosage: 1 TABLET, TWICE DAILY
     Route: 048
  20. MULTIVITALITY CHILDREN^S GUMMY BEARS [Concomitant]
     Indication: Product used for unknown indication
     Dosage: UNKNOWN
     Route: 048
  21. IRON [Concomitant]
     Active Substance: IRON
     Indication: Product used for unknown indication
     Dosage: UNKNOWN
     Route: 065
  22. SODIUM FLUORIDE\STANNOUS FLUORIDE [Concomitant]
     Active Substance: SODIUM FLUORIDE\STANNOUS FLUORIDE
     Indication: Product used for unknown indication
     Dosage: UNKNOWN
     Route: 065
  23. OMEGA 3 [Concomitant]
     Active Substance: CAPSAICIN
     Indication: Product used for unknown indication
     Dosage: UNKNOWN
     Route: 065
  24. LACTOBACILLUS ACIDOPHILUS [Concomitant]
     Active Substance: LACTOBACILLUS ACIDOPHILUS
     Indication: Product used for unknown indication
     Dosage: UNK
     Route: 048
  25. MIRALAX [Concomitant]
     Active Substance: POLYETHYLENE GLYCOL 3350
     Indication: Product used for unknown indication
     Dosage: 17 G, DAILY FOR 31 DAYS
     Route: 048
  26. CALCIUM + D PLUS MINERALS [Concomitant]
     Indication: Product used for unknown indication
     Dosage: 650 MG, DAILY, 650 MG MILK CHOCOLATE CHEWABLE
     Route: 048
  27. FISH OIL [Concomitant]
     Active Substance: FISH OIL
     Indication: Product used for unknown indication
     Dosage: UNKNOWN
     Route: 048
  28. LIQUID CALCIUM PLUS VITAMIN D [Concomitant]
     Indication: Product used for unknown indication
     Dosage: UNK
     Route: 048
  29. MAGNESIUM [Concomitant]
     Active Substance: MAGNESIUM
     Indication: Product used for unknown indication
     Dosage: UNKNOWN
     Route: 065
  30. PAMIDRONATE DISODIUM [Concomitant]
     Active Substance: PAMIDRONATE DISODIUM
     Indication: Product used for unknown indication
     Dosage: 5 ML EVERY 3 MONTHS FOR 4 DOSES
     Route: 042
  31. SOLU-CORTEF [Concomitant]
     Active Substance: HYDROCORTISONE SODIUM SUCCINATE
     Indication: Illness
     Dosage: 50 MG, ONCE AS NEEDED
     Route: 030
  32. IBUPROFEN [Concomitant]
     Active Substance: IBUPROFEN
     Indication: Product used for unknown indication
     Dosage: 100 MG/5 ML, AS NEEDED
     Route: 048
  33. PROAIR HFA [Concomitant]
     Active Substance: ALBUTEROL SULFATE
     Indication: Wheezing
     Dosage: 2 PUFFS, EVERY 4 HOURS AS NEEDED
     Route: 055
  34. PROAIR HFA [Concomitant]
     Active Substance: ALBUTEROL SULFATE
     Indication: Cough
  35. MULTIVITAMIN DROPS WITH FLUORIDE [Concomitant]
     Active Substance: ASCORBIC ACID\CHOLECALCIFEROL\CYANOCOBALAMIN\NIACINAMIDE\PYRIDOXINE\RIBOFLAVIN\SODIUM FLUORIDE\THIAM
     Indication: Product used for unknown indication
     Dosage: 2 TABLETS, BID
     Route: 048
  36. ACETAMINOPHEN [Concomitant]
     Active Substance: ACETAMINOPHEN
     Indication: Product used for unknown indication
     Dosage: 32 MG/ ML, AS NEEDED
     Route: 048

REACTIONS (6)
  - Erythema [Recovered/Resolved]
  - Pruritus [Recovered/Resolved]
  - Rash [Recovered/Resolved]
  - Flushing [Not Recovered/Not Resolved]
  - Swelling [Recovering/Resolving]
  - Unevaluable event [Not Recovered/Not Resolved]

NARRATIVE: CASE EVENT DATE: 20240415
